FAERS Safety Report 10649597 (Version 1)
Quarter: 2014Q4

REPORT INFORMATION
  Report Type: Other
  Country: CA (occurrence: CA)
  Receive Date: 20141212
  Receipt Date: 20141212
  Transmission Date: 20150529
  Serious: Yes (Congenital Anomaly)
  Sender: FDA-Public Use
  Company Number: CA-APOTEX-2014AP006019

PATIENT
  Age: 90 Year
  Sex: Female

DRUGS (1)
  1. APO-DONEPEZIL (DONEPEZIL) TABLET [Suspect]
     Active Substance: DONEPEZIL
     Indication: PRODUCT USED FOR UNKNOWN INDICATION
     Dosage: 1 DF, QD
     Route: 048

REACTIONS (6)
  - Speech disorder [Unknown]
  - Local swelling [Unknown]
  - Pruritus [Unknown]
  - Activities of daily living impaired [Unknown]
  - Insomnia [Unknown]
  - Product substitution issue [Unknown]
